FAERS Safety Report 6257089-7 (Version None)
Quarter: 2009Q3

REPORT INFORMATION
  Report Type: 
  Country: None (occurrence: None)
  Receive Date: 20090706
  Receipt Date: 20090623
  Transmission Date: 20100115
  Serious: Yes (Life-Threatening, Hospitalization)
  Sender: FDA-Public Use
  Company Number: B0580263A

PATIENT
  Age: 64 Year
  Sex: Male

DRUGS (4)
  1. AVANDIA [Suspect]
     Route: 048
     Dates: start: 20081101, end: 20090124
  2. DIAMICRON [Concomitant]
     Route: 048
  3. RAMIPRIL [Concomitant]
     Route: 048
  4. LESCOL [Concomitant]
     Route: 048

REACTIONS (2)
  - ANAEMIA [None]
  - ASTHENIA [None]
